FAERS Safety Report 5766747-X (Version None)
Quarter: 2008Q2

REPORT INFORMATION
  Report Type: 
  Country: None (occurrence: None)
  Receive Date: 20080612
  Receipt Date: 20080530
  Transmission Date: 20081010
  Serious: Yes (Death, Hospitalization)
  Sender: FDA-Public Use
  Company Number: US-JNJFOC-20080403213

PATIENT
  Sex: Female
  Weight: 105.51 kg

DRUGS (15)
  1. REMICADE [Suspect]
     Route: 042
  2. REMICADE [Suspect]
     Route: 042
  3. REMICADE [Suspect]
     Indication: RHEUMATOID ARTHRITIS
     Route: 042
  4. TEMAZEPAM [Concomitant]
     Route: 048
  5. ATENOLOL [Concomitant]
  6. NORVASC [Concomitant]
  7. MEDROL [Concomitant]
  8. INHALERS [Concomitant]
  9. AMITRIPTYLINE HCL [Concomitant]
     Route: 048
  10. COLACE [Concomitant]
  11. FOLIC ACID [Concomitant]
  12. INSULIN [Concomitant]
  13. IRON SUPPLEMENTS [Concomitant]
  14. LASIX [Concomitant]
  15. LIPITOR [Concomitant]

REACTIONS (26)
  - ACUTE CORONARY SYNDROME [None]
  - ASTHENIA [None]
  - BLOOD PH DECREASED [None]
  - CHRONIC OBSTRUCTIVE PULMONARY DISEASE [None]
  - CONSTIPATION [None]
  - CONTUSION [None]
  - COUGH [None]
  - DECREASED APPETITE [None]
  - DIALYSIS [None]
  - ECCHYMOSIS [None]
  - FATIGUE [None]
  - FLUID OVERLOAD [None]
  - HEPATIC ENZYME INCREASED [None]
  - HISTOPLASMOSIS [None]
  - HYPOGLYCAEMIA [None]
  - HYPOTENSION [None]
  - INTERSTITIAL LUNG DISEASE [None]
  - LUNG NEOPLASM [None]
  - MENTAL STATUS CHANGES [None]
  - MULTI-ORGAN FAILURE [None]
  - PANCYTOPENIA [None]
  - PULMONARY EMBOLISM [None]
  - PYREXIA [None]
  - RENAL FAILURE ACUTE [None]
  - RESPIRATORY FAILURE [None]
  - UNRESPONSIVE TO STIMULI [None]
